FAERS Safety Report 22008851 (Version 1)
Quarter: 2023Q1

REPORT INFORMATION
  Report Type: Report from Study
  Country: US (occurrence: US)
  Receive Date: 20230219
  Receipt Date: 20230219
  Transmission Date: 20230418
  Serious: Yes (Other)
  Sender: FDA-Public Use
  Company Number: US-ABBVIE-4310870

PATIENT
  Sex: Male

DRUGS (14)
  1. VENCLEXTA [Suspect]
     Active Substance: VENETOCLAX
     Indication: Chronic lymphocytic leukaemia
     Route: 048
     Dates: start: 20230101
  2. ELIQUIS [Concomitant]
     Active Substance: APIXABAN
     Indication: Product used for unknown indication
     Dosage: FORM STRENGTH 5 MILLIGRAM
     Route: 048
  3. METHYLPREDNISOLONE [Concomitant]
     Active Substance: METHYLPREDNISOLONE
     Indication: Product used for unknown indication
     Dosage: FORM STRENGTH 4 MILLIGRAM?THREE ON SUNDAY, TWO ON MONDAY, ONE ON TUESDAY
     Route: 048
  4. TRAZODONE [Concomitant]
     Active Substance: TRAZODONE HYDROCHLORIDE
     Indication: Product used for unknown indication
     Dosage: FROM STRENGTH 50 MILLIGRAM
     Route: 048
  5. FLOMAX [Concomitant]
     Active Substance: TAMSULOSIN HYDROCHLORIDE
     Indication: Product used for unknown indication
     Dosage: FORM STRENGTH 0.4 MILLIGRAM
     Route: 048
  6. ALLOPURINOL [Concomitant]
     Active Substance: ALLOPURINOL
     Indication: Product used for unknown indication
     Dosage: FORM STRENGTH 100 MILLIGRAM
     Route: 048
  7. Hydrocodone- acetaminophen [Concomitant]
     Indication: Pain management
     Dosage: 5MG -325MG
     Route: 048
  8. ALBUTEROL SULFATE [Concomitant]
     Active Substance: ALBUTEROL SULFATE
     Indication: Product used for unknown indication
     Dosage: 90 MCG/ACTUATION BREATH ACTIVATED POWDER INHALER
  9. Lantus U-100 [Concomitant]
     Indication: Product used for unknown indication
     Dosage: INSULIN 100 UNIT/ML SUBCUTANEOUS SOLUTION?30 UNITS DAILY
     Route: 058
  10. Cyanocobalamin (vit-b-12) [Concomitant]
     Indication: Product used for unknown indication
     Dosage: FORM STRENGTH 500 MICROGRAM
     Route: 048
  11. LIDOCAINE [Concomitant]
     Active Substance: LIDOCAINE
     Indication: Product used for unknown indication
     Dosage: 1.8% TOPICAL PATCH?APPLY 1 PATCH DAILY FOR 12 HOURS
  12. ATORVASTATIN [Concomitant]
     Active Substance: ATORVASTATIN
     Indication: Product used for unknown indication
     Dosage: FORM STRENGTH 80 MILLIGRAM
     Route: 048
  13. Insulin lispro (U-100) [Concomitant]
     Indication: Product used for unknown indication
     Dosage: 100 UNIT/ML PEN?8 TO 10 UNITS PRIOR TO MEALS
     Route: 058
  14. BUMETANIDE [Concomitant]
     Active Substance: BUMETANIDE
     Indication: Product used for unknown indication
     Dosage: FORM STRENGTH 2 MILLIGRAM
     Route: 048

REACTIONS (2)
  - Pneumothorax [Unknown]
  - Pleural effusion [Unknown]
